FAERS Safety Report 8900918 (Version 1)
Quarter: 2012Q4

REPORT INFORMATION
  Report Type: 
  Country: US (occurrence: US)
  Receive Date: 20121109
  Receipt Date: 20121109
  Transmission Date: 20130627
  Serious: Yes (Other)
  Sender: FDA-Public Use
  Company Number: US-CUBIST-2012S1000908

PATIENT
  Age: 49 Year
  Sex: Male

DRUGS (10)
  1. CUBICIN [Suspect]
     Indication: INFECTION
     Dates: start: 200803, end: 200804
  2. ROCEPHIN [Suspect]
     Indication: INFECTION
     Dates: start: 200803, end: 200804
  3. HEPARIN [Concomitant]
     Indication: CATHETER REMOVAL
  4. CHONDROITIN SULFATE [Concomitant]
     Indication: PRODUCT USED FOR UNKNOWN INDICATION
  5. SEPTRA [Concomitant]
     Indication: PRODUCT USED FOR UNKNOWN INDICATION
  6. AVELOX [Concomitant]
     Indication: PRODUCT USED FOR UNKNOWN INDICATION
  7. BIAXIN [Concomitant]
     Indication: PRODUCT USED FOR UNKNOWN INDICATION
  8. BACTROBAN NASAL [Concomitant]
     Indication: PRODUCT USED FOR UNKNOWN INDICATION
     Route: 045
  9. ERYTHROMYCIN [Concomitant]
     Indication: INFECTION
  10. ANTIBIOTIC [Concomitant]
     Indication: PRODUCT USED FOR UNKNOWN INDICATION

REACTIONS (18)
  - Cardiac disorder [Not Recovered/Not Resolved]
  - Cardiac murmur [Not Recovered/Not Resolved]
  - Ulcer [Not Recovered/Not Resolved]
  - Syncope [Not Recovered/Not Resolved]
  - Skin erosion [Not Recovered/Not Resolved]
  - Lymphadenopathy [Not Recovered/Not Resolved]
  - Urinary incontinence [Not Recovered/Not Resolved]
  - Amnesia [Not Recovered/Not Resolved]
  - Throat tightness [Not Recovered/Not Resolved]
  - Rhinorrhoea [Not Recovered/Not Resolved]
  - Gastric disorder [Not Recovered/Not Resolved]
  - Furuncle [Not Recovered/Not Resolved]
  - Folliculitis [Not Recovered/Not Resolved]
  - Skin discolouration [Not Recovered/Not Resolved]
  - Skin exfoliation [Not Recovered/Not Resolved]
  - Stomatitis [Not Recovered/Not Resolved]
  - Treatment failure [Not Recovered/Not Resolved]
  - Ear congestion [Not Recovered/Not Resolved]
